FAERS Safety Report 5188289-5 (Version None)
Quarter: 2006Q4

REPORT INFORMATION
  Report Type: 
  Country: None (occurrence: None)
  Receive Date: 20061221
  Receipt Date: 20061213
  Transmission Date: 20070319
  Serious: Yes (Other)
  Sender: FDA-Public Use
  Company Number: FR-GLAXOSMITHKLINE-B0451332A

PATIENT

DRUGS (2)
  1. ARIXTRA [Suspect]
     Route: 058
     Dates: start: 20060101, end: 20060101
  2. VANCOMYCIN [Concomitant]

REACTIONS (1)
  - THROMBOCYTOPENIA [None]
